FAERS Safety Report 26186076 (Version 1)
Quarter: 2025Q4

REPORT INFORMATION
  Report Type: Spontaneous
  Country: KR (occurrence: KR)
  Receive Date: 20251222
  Receipt Date: 20251222
  Transmission Date: 20260117
  Serious: Yes (Other)
  Sender: SANOFI AVENTIS
  Company Number: KR-SANOFI-02752841

PATIENT
  Sex: Male

DRUGS (2)
  1. DUPIXENT [Suspect]
     Active Substance: DUPILUMAB
     Indication: Chronic obstructive pulmonary disease
     Dosage: 300 MG
     Dates: start: 20251201
  2. TYLENOL [Suspect]
     Active Substance: ACETAMINOPHEN
     Dosage: UNK
     Route: 065

REACTIONS (8)
  - Glaucoma [Recovered/Resolved]
  - Urinary hesitation [Recovered/Resolved]
  - Psoriasis [Recovered/Resolved]
  - Multiple drug hypersensitivity [Recovered/Resolved]
  - Pain [Recovered/Resolved]
  - Osteoporosis [Recovered/Resolved]
  - Myalgia [Recovered/Resolved]
  - Toothache [Recovered/Resolved]

NARRATIVE: CASE EVENT DATE: 20251201
